FAERS Safety Report 8058871-6 (Version None)
Quarter: 2012Q1

REPORT INFORMATION
  Report Type: 
  Country: None (occurrence: None)
  Receive Date: 20120120
  Receipt Date: 20111104
  Transmission Date: 20120608
  Serious: No
  Sender: FDA-Public Use
  Company Number: US-BRISTOL-MYERS SQUIBB COMPANY-16203812

PATIENT
  Age: 71 Year
  Sex: Male

DRUGS (2)
  1. VALTREX [Concomitant]
  2. YERVOY [Suspect]
     Dates: start: 20111011

REACTIONS (2)
  - DIARRHOEA [None]
  - RASH [None]
